FAERS Safety Report 17207207 (Version 3)
Quarter: 2020Q1

REPORT INFORMATION
  Report Type: Report from Study
  Country: CO (occurrence: CO)
  Receive Date: 20191227
  Receipt Date: 20200121
  Transmission Date: 20200409
  Serious: Yes (Other)
  Sender: FDA-Public Use
  Company Number: PHHY2019CO181521

PATIENT
  Age: 66 Year
  Sex: Male
  Weight: 68 kg

DRUGS (2)
  1. TASIGNA [Suspect]
     Active Substance: NILOTINIB
     Indication: CHRONIC MYELOID LEUKAEMIA
     Dosage: 400 MG, QD
     Route: 048
     Dates: start: 20160924
  2. TASIGNA [Suspect]
     Active Substance: NILOTINIB
     Dosage: 800 MG (TWO 200 MG TABLET IN THE MORNING AND TWO AT NIGHT)
     Route: 048
     Dates: start: 201609

REACTIONS (10)
  - Chronic myeloid leukaemia recurrent [Unknown]
  - Emotional disorder [Unknown]
  - Splenitis [Unknown]
  - Hyperhidrosis [Unknown]
  - Fatigue [Unknown]
  - Polymerase chain reaction positive [Unknown]
  - Malignant neoplasm progression [Unknown]
  - Malaise [Unknown]
  - Inappropriate schedule of product administration [Unknown]
  - Chronic myeloid leukaemia [Unknown]

NARRATIVE: CASE EVENT DATE: 201909
